FAERS Safety Report 5900410-7 (Version None)
Quarter: 2008Q3

REPORT INFORMATION
  Report Type: 
  Country: None (occurrence: None)
  Receive Date: 20080926
  Receipt Date: 20080916
  Transmission Date: 20090109
  Serious: Yes (Hospitalization, Other)
  Sender: FDA-Public Use
  Company Number: US-ELI_LILLY_AND_COMPANY-US200711006123

PATIENT
  Sex: Male
  Weight: 82.993 kg

DRUGS (27)
  1. CYMBALTA [Suspect]
     Indication: BACK PAIN
     Dosage: 1 D/F, UNK
     Dates: start: 20050412
  2. CYMBALTA [Suspect]
     Dosage: 60 MG, 2/D
     Dates: start: 20050601
  3. CYMBALTA [Suspect]
     Dosage: 60 MG, DAILY (1/D)
  4. CYMBALTA [Suspect]
     Dosage: 100 MG, EACH EVENING
     Dates: start: 20060101, end: 20060101
  5. CYMBALTA [Suspect]
     Dosage: 120 MG, EACH MORNING
     Dates: start: 20060101, end: 20060101
  6. CYMBALTA [Suspect]
     Dosage: 60 MG, DAILY (1/D)
     Dates: start: 20060601, end: 20060601
  7. CYMBALTA [Suspect]
     Dosage: 30 MG, DAILY (1/D)
     Dates: start: 20060601, end: 20060618
  8. HYDROMORPHONE HCL [Concomitant]
     Dosage: 4 MG, AS NEEDED
  9. PROTONIX [Concomitant]
     Dosage: 40 MG, DAILY (1/D)
  10. NEURONTIN [Concomitant]
     Dosage: 300 MG, 3/D
  11. REQUIP [Concomitant]
     Dosage: 100 MG, EACH MORNING
  12. CLONAZEPAM [Concomitant]
     Dates: end: 20050621
  13. ENDOCET [Concomitant]
     Dosage: 1 D/F, AS NEEDED
  14. MIRAPEX [Concomitant]
     Dosage: 0.25 MG, EACH MORNING
  15. MIRAPEX [Concomitant]
     Dosage: 0.75 MG, EACH EVENING
  16. ASPIRIN [Concomitant]
     Dosage: 81 MG, DAILY (1/D)
  17. ZOVIRAX                                 /GRC/ [Concomitant]
  18. NUBAIN [Concomitant]
     Dosage: 10 MG, UNK
  19. PHENERGAN HCL [Concomitant]
     Dosage: 25 MG, UNK
  20. TORADOL [Concomitant]
     Dosage: 60 MG, UNK
  21. LUNESTA [Concomitant]
     Dosage: 3 MG, UNK
  22. ROCEPHIN [Concomitant]
     Dosage: 2 G, UNK
  23. AMBIEN [Concomitant]
     Dosage: 5 MG, AS NEEDED
  24. TRAZODONE HCL [Concomitant]
     Dosage: 50 MG, EACH EVENING
  25. TYLENOL                                 /SCH/ [Concomitant]
     Dosage: 650 MG, AS NEEDED
  26. NORMODYNE [Concomitant]
     Dosage: 5 MG, UNK
  27. NORMODYNE [Concomitant]
     Dosage: 10 MG, UNK

REACTIONS (50)
  - ABDOMINAL PAIN UPPER [None]
  - AGGRESSION [None]
  - AGITATION [None]
  - BLOOD HOMOCYSTEINE INCREASED [None]
  - BLOOD PRESSURE INCREASED [None]
  - CARDIOMEGALY [None]
  - CHEST PAIN [None]
  - CONVULSION [None]
  - DECREASED APPETITE [None]
  - DELIRIUM [None]
  - DEPRESSION [None]
  - DIABETES MELLITUS [None]
  - DIPLOPIA [None]
  - DISABILITY [None]
  - DIZZINESS [None]
  - DRUG WITHDRAWAL SYNDROME [None]
  - DYSLIPIDAEMIA [None]
  - DYSPNOEA [None]
  - EPISTAXIS [None]
  - ERYTHEMA [None]
  - EYE PAIN [None]
  - FALL [None]
  - FATIGUE [None]
  - FORMICATION [None]
  - HAEMATEMESIS [None]
  - HEADACHE [None]
  - HEPATIC ENCEPHALOPATHY [None]
  - HEPATIC STEATOSIS [None]
  - HEPATOTOXICITY [None]
  - HIATUS HERNIA [None]
  - HOT FLUSH [None]
  - HYPERAMMONAEMIA [None]
  - HYPERHIDROSIS [None]
  - HYPOKALAEMIA [None]
  - INJURY [None]
  - INSOMNIA [None]
  - MICTURITION URGENCY [None]
  - MOVEMENT DISORDER [None]
  - MUSCLE SPASMS [None]
  - NASAL CONGESTION [None]
  - NASOPHARYNGITIS [None]
  - NAUSEA [None]
  - NEUROPATHY PERIPHERAL [None]
  - PRESYNCOPE [None]
  - SINUSITIS [None]
  - SOMNOLENCE [None]
  - SUICIDAL IDEATION [None]
  - SYNCOPE [None]
  - TINNITUS [None]
  - TRANSIENT ISCHAEMIC ATTACK [None]
